FAERS Safety Report 7108594-2 (Version None)
Quarter: 2010Q4

REPORT INFORMATION
  Report Type: 
  Country: None (occurrence: None)
  Receive Date: 20101115
  Receipt Date: 20101115
  Transmission Date: 20110411
  Serious: No
  Sender: FDA-Public Use
  Company Number: None

PATIENT
  Age: 61 Year
  Sex: Female
  Weight: 81.6475 kg

DRUGS (2)
  1. TRIAMTERENE AND HYDROCHLOROTHIAZIDE [Suspect]
     Indication: BLOOD PRESSURE
     Dosage: 1 TABLET 1X/DAY MOUTH
     Route: 048
     Dates: start: 20100511, end: 20100514
  2. . [Concomitant]

REACTIONS (4)
  - ASTHENIA [None]
  - CHILLS [None]
  - HEADACHE [None]
  - PYREXIA [None]
